FAERS Safety Report 10273759 (Version 1)
Quarter: 2014Q3

REPORT INFORMATION
  Report Type: Spontaneous
  Country: GB (occurrence: GB)
  Receive Date: 20140702
  Receipt Date: 20140702
  Transmission Date: 20150326
  Serious: Yes (Hospitalization, Disabling)
  Sender: FDA-Public Use
  Company Number: GB-TEVA-491548ISR

PATIENT
  Age: 66 Year
  Sex: Male
  Weight: 62 kg

DRUGS (7)
  1. MORPHINE [Concomitant]
     Active Substance: MORPHINE
     Dates: start: 2008
  2. RABEPRAZOLE [Concomitant]
     Active Substance: RABEPRAZOLE
     Dates: start: 2013
  3. ALENDRONIC ACID [Suspect]
     Active Substance: ALENDRONIC ACID
     Indication: OSTEOPOROSIS
     Dates: start: 2006, end: 2014
  4. ARIMIDEX [Concomitant]
     Active Substance: ANASTROZOLE
     Dates: start: 20110802
  5. LETROZOLE. [Concomitant]
     Active Substance: LETROZOLE
     Dates: start: 2011
  6. TAMOXIFEN [Concomitant]
     Active Substance: TAMOXIFEN
     Dates: start: 200708, end: 200801
  7. GABAPENTIN. [Concomitant]
     Active Substance: GABAPENTIN
     Dates: start: 2010

REACTIONS (2)
  - Lower limb fracture [Recovering/Resolving]
  - Nail disorder [Recovering/Resolving]
